FAERS Safety Report 11233958 (Version 1)
Quarter: 2015Q3

REPORT INFORMATION
  Report Type: Spontaneous
  Country: IN (occurrence: IN)
  Receive Date: 20150702
  Receipt Date: 20150702
  Transmission Date: 20151125
  Serious: Yes (Other)
  Sender: FDA-Public Use
  Company Number: IN-CIPLA LTD.-2015IN05196

PATIENT

DRUGS (1)
  1. TOPIRAMATE. [Suspect]
     Active Substance: TOPIRAMATE
     Dosage: LOW DOSE
     Route: 065

REACTIONS (3)
  - Angle closure glaucoma [Unknown]
  - Retinal disorder [Recovered/Resolved]
  - Myopia [Unknown]
